FAERS Safety Report 8245179-9 (Version None)
Quarter: 2012Q1

REPORT INFORMATION
  Report Type: 
  Country: None (occurrence: None)
  Receive Date: 20120329
  Receipt Date: 20120321
  Transmission Date: 20120608
  Serious: No
  Sender: FDA-Public Use
  Company Number: US-BAYER-2012-029437

PATIENT
  Age: 72 Year
  Sex: Female
  Weight: 57.143 kg

DRUGS (3)
  1. ALEVE (CAPLET) [Suspect]
     Indication: ANALGESIC THERAPY
     Route: 048
  2. SYNTHROID [Concomitant]
  3. HYDROCHLOROTHIAZIDE [Concomitant]

REACTIONS (3)
  - FOREIGN BODY [None]
  - ODYNOPHAGIA [None]
  - DYSPHAGIA [None]
